FAERS Safety Report 7818091-4 (Version None)
Quarter: 2011Q4

REPORT INFORMATION
  Report Type: 
  Country: None (occurrence: None)
  Receive Date: 20111017
  Receipt Date: 20111004
  Transmission Date: 20120403
  Serious: Yes (Other)
  Sender: FDA-Public Use
  Company Number: US-ROCHE-1002710

PATIENT
  Age: 55 Year
  Sex: Female

DRUGS (3)
  1. RIBAVIRIN [Suspect]
     Route: 048
     Dates: start: 20110927
  2. RIBAVIRIN [Suspect]
     Indication: HEPATITIS C
     Dosage: 600MG IN AM AND 400MG IN AFTERNOON
     Route: 048
     Dates: start: 20110927
  3. PEGASYS [Suspect]
     Indication: HEPATITIS C
     Route: 058
     Dates: start: 20110927

REACTIONS (1)
  - LEUKOCYTOCLASTIC VASCULITIS [None]
